FAERS Safety Report 23184435 (Version 1)
Quarter: 2023Q4

REPORT INFORMATION
  Report Type: Report from Study
  Country: KR (occurrence: KR)
  Receive Date: 20231115
  Receipt Date: 20231115
  Transmission Date: 20240109
  Serious: Yes (Hospitalization)
  Sender: FDA-Public Use
  Company Number: KR-TAKEDA-2023TUS109233

PATIENT
  Age: 73 Year
  Sex: Male
  Weight: 52 kg

DRUGS (11)
  1. BRIGATINIB [Suspect]
     Active Substance: BRIGATINIB
     Indication: Non-small cell lung cancer
     Dosage: 90 MILLIGRAM, QD
     Route: 048
     Dates: start: 20210416, end: 20210422
  2. BRIGATINIB [Suspect]
     Active Substance: BRIGATINIB
     Dosage: 180 MILLIGRAM, QD
     Route: 048
     Dates: start: 20210423
  3. NEREXONE SR [Concomitant]
     Indication: Spinal disorder
     Dosage: UNK UNK, BID
     Route: 048
     Dates: start: 20210401
  4. LYRICA [Concomitant]
     Active Substance: PREGABALIN
     Indication: Spinal disorder
     Dosage: UNK UNK, BID
     Route: 048
     Dates: start: 20210402
  5. FENTANYL [Concomitant]
     Active Substance: FENTANYL\FENTANYL CITRATE
     Indication: Pain prophylaxis
     Dosage: UNK UNK, QD
     Route: 061
     Dates: start: 20210419
  6. ACTIQ [Concomitant]
     Active Substance: FENTANYL CITRATE
     Indication: Pain prophylaxis
     Dosage: UNK UNK, BID
     Route: 048
     Dates: start: 20210422
  7. CNU [Concomitant]
     Indication: Liver function test increased
     Dosage: UNK UNK, QD
     Route: 048
     Dates: start: 20210708
  8. Godex [Concomitant]
     Indication: Liver function test increased
     Dosage: UNK UNK, QD
     Route: 048
     Dates: start: 20210930
  9. XARELTO [Concomitant]
     Active Substance: RIVAROXABAN
     Indication: Pulmonary embolism
     Dosage: UNK
     Route: 048
     Dates: start: 20211220
  10. LOSARTAN POTASSIUM [Concomitant]
     Active Substance: LOSARTAN POTASSIUM
     Indication: Hypertension
     Dosage: UNK UNK, QD
     Route: 048
     Dates: start: 20210503
  11. TWOLION [Concomitant]
     Indication: Pruritus
     Dosage: UNK UNK, QD
     Route: 048
     Dates: start: 20210930

REACTIONS (1)
  - Pleural effusion [Recovered/Resolved]

NARRATIVE: CASE EVENT DATE: 20221011
